FAERS Safety Report 20689031 (Version 1)
Quarter: 2022Q2

REPORT INFORMATION
  Report Type: Spontaneous
  Country: US (occurrence: US)
  Receive Date: 20220408
  Receipt Date: 20220408
  Transmission Date: 20220720
  Serious: No
  Sender: FDA-Public Use
  Company Number: US-FERRINGPH-2021FE02850

PATIENT
  Age: 68 Year
  Sex: Male

DRUGS (1)
  1. FIRMAGON [Suspect]
     Active Substance: DEGARELIX ACETATE
     Indication: Prostate cancer
     Dosage: UNK, MONTHLY
     Route: 065
     Dates: start: 202010

REACTIONS (4)
  - Inflammation [Unknown]
  - Pain [Unknown]
  - Stress [Recovering/Resolving]
  - Depression [Unknown]
